FAERS Safety Report 8471674-3 (Version None)
Quarter: 2012Q2

REPORT INFORMATION
  Report Type: 
  Country: None (occurrence: None)
  Receive Date: 20120627
  Receipt Date: 20120620
  Transmission Date: 20120825
  Serious: Yes (Hospitalization)
  Sender: FDA-Public Use
  Company Number: US-GLAXOSMITHKLINE-A0874960A

PATIENT
  Age: 66 Year
  Sex: Female
  Weight: 116.4 kg

DRUGS (7)
  1. GLUCOTROL [Concomitant]
  2. PROTONIX [Concomitant]
  3. AVANDIA [Suspect]
     Indication: TYPE 2 DIABETES MELLITUS
     Dosage: 8MG PER DAY
     Route: 048
     Dates: start: 20030507, end: 20100101
  4. MICARDIS [Concomitant]
  5. OXYCONTIN [Concomitant]
  6. CLONAZEPAM [Concomitant]
  7. NEURONTIN [Concomitant]

REACTIONS (3)
  - CARDIAC FAILURE CONGESTIVE [None]
  - MYOCARDIAL INFARCTION [None]
  - RENAL FAILURE [None]
